FAERS Safety Report 4355185-2 (Version None)
Quarter: 2004Q2

REPORT INFORMATION
  Report Type: 
  Country: None (occurrence: None)
  Receive Date: 20040510
  Receipt Date: 20040428
  Transmission Date: 20050107
  Serious: Yes (Life-Threatening, Hospitalization)
  Sender: FDA-Public Use
  Company Number: FR-BRISTOL-MYERS SQUIBB COMPANY-12574208

PATIENT
  Age: 58 Year
  Sex: Female
  Weight: 55 kg

DRUGS (9)
  1. ELISOR TABS [Suspect]
     Dosage: STOPPED 28-NOV-2003 FOR ACUTE PANCRATITIS, DISCHARGED ON 19-DEC-2003 WITH PRAVASTATIN.
     Route: 048
     Dates: start: 20031031, end: 20040215
  2. COVERSYL [Suspect]
  3. TENORMIN [Concomitant]
     Dates: start: 20031115, end: 20031215
  4. LOXEN [Concomitant]
     Dates: start: 20031115, end: 20031215
  5. PLAVIX [Concomitant]
  6. ASPEGIC 325 [Concomitant]
  7. ABUFENE [Concomitant]
  8. SECTRAL [Concomitant]
  9. AMLODIPINE [Concomitant]

REACTIONS (5)
  - BLOOD CREATININE INCREASED [None]
  - CHOLELITHIASIS [None]
  - MYALGIA [None]
  - PANCREATITIS ACUTE [None]
  - PLEURAL EFFUSION [None]
